FAERS Safety Report 24658045 (Version 1)
Quarter: 2024Q4

REPORT INFORMATION
  Report Type: Spontaneous
  Country: JP (occurrence: JP)
  Receive Date: 20241125
  Receipt Date: 20241125
  Transmission Date: 20250115
  Serious: No
  Sender: ASTELLAS
  Company Number: JP-ASTELLAS-2024JP005169

PATIENT
  Age: 5 Year

DRUGS (1)
  1. VESICARE [Suspect]
     Active Substance: SOLIFENACIN SUCCINATE
     Indication: Product used for unknown indication
     Route: 048
     Dates: start: 202405

REACTIONS (2)
  - Faeces discoloured [Unknown]
  - Product use issue [Unknown]

NARRATIVE: CASE EVENT DATE: 20240501
